FAERS Safety Report 26195465 (Version 1)
Quarter: 2025Q4

REPORT INFORMATION
  Report Type: Spontaneous
  Country: EU (occurrence: EU)
  Receive Date: 20251224
  Receipt Date: 20251224
  Transmission Date: 20260117
  Serious: Yes (Other)
  Sender: SANOFI AVENTIS
  Company Number: None

PATIENT
  Sex: Female

DRUGS (1)
  1. ARAVA [Suspect]
     Active Substance: LEFLUNOMIDE
     Dosage: 10 MG, QD
     Route: 015
     Dates: end: 200403

REACTIONS (2)
  - Foetal distress syndrome [Unknown]
  - Breech presentation [Unknown]

NARRATIVE: CASE EVENT DATE: 20040101
